FAERS Safety Report 19163393 (Version 1)
Quarter: 2021Q2

REPORT INFORMATION
  Report Type: Spontaneous
  Country: US (occurrence: US)
  Receive Date: 20210421
  Receipt Date: 20210421
  Transmission Date: 20210717
  Serious: Yes (Other)
  Sender: FDA-Public Use
  Company Number: None

PATIENT
  Age: 58 Year
  Sex: Male
  Weight: 130.18 kg

DRUGS (3)
  1. IMATINIB 400MG TAB [Concomitant]
     Active Substance: IMATINIB
  2. LISINOPRIL 40 MG TAB [Concomitant]
  3. IMATINIB MESYLATE 400 MG TABS [Suspect]
     Active Substance: IMATINIB MESYLATE
     Indication: GASTROINTESTINAL STROMAL TUMOUR
     Route: 048
     Dates: start: 20200930, end: 20210421

REACTIONS (1)
  - Disease progression [None]

NARRATIVE: CASE EVENT DATE: 20210420
